FAERS Safety Report 13229383 (Version 1)
Quarter: 2017Q1

REPORT INFORMATION
  Report Type: Spontaneous
  Country: US (occurrence: US)
  Receive Date: 20170214
  Receipt Date: 20170214
  Transmission Date: 20170428
  Serious: No
  Sender: FDA-Public Use
  Company Number: US-ASTRAZENECA-2017SE15811

PATIENT
  Sex: Male

DRUGS (1)
  1. NEXIUM 24HR [Suspect]
     Active Substance: ESOMEPRAZOLE MAGNESIUM
     Dosage: 2 DF, TWO TIMES A DAY (TAKING 2 IN THE MORNING AND 2 IN THE EVENING)
     Route: 048

REACTIONS (3)
  - Dry mouth [Unknown]
  - Off label use [Unknown]
  - Product use issue [Unknown]
